FAERS Safety Report 25205976 (Version 1)
Quarter: 2025Q2

REPORT INFORMATION
  Report Type: Spontaneous
  Country: FR (occurrence: FR)
  Receive Date: 20250417
  Receipt Date: 20250417
  Transmission Date: 20250716
  Serious: Yes (Other)
  Sender: GLAXOSMITHKLINE
  Company Number: None

PATIENT

DRUGS (1)
  1. FLUTICASONE FUROATE\VILANTEROL TRIFENATATE [Suspect]
     Active Substance: FLUTICASONE FUROATE\VILANTEROL TRIFENATATE
     Indication: Asthma
     Dosage: 1 DF, QD
     Route: 055
     Dates: end: 20250401

REACTIONS (3)
  - Cataract [Not Recovered/Not Resolved]
  - Dysphonia [Not Recovered/Not Resolved]
  - Vocal cord thickening [Not Recovered/Not Resolved]

NARRATIVE: CASE EVENT DATE: 20220201
